FAERS Safety Report 5644111-1 (Version None)
Quarter: 2008Q1

REPORT INFORMATION
  Report Type: 
  Country: None (occurrence: None)
  Receive Date: 20080226
  Receipt Date: 20080212
  Transmission Date: 20080703
  Serious: Yes (Hospitalization)
  Sender: FDA-Public Use
  Company Number: B0509371A

PATIENT
  Age: 68 Year
  Sex: Female

DRUGS (14)
  1. FORTAZ [Suspect]
     Indication: DRUG USE FOR UNKNOWN INDICATION
     Dosage: 1 GRAM(S) / THREE TIMES PER DAY / ORAL
     Route: 048
     Dates: start: 20070924, end: 20071005
  2. GENTAMICIN SULFATE [Suspect]
     Indication: DRUG USE FOR UNKNOWN INDICATION
     Dosage: 80 MG / TWICE PER DAY / ORAL
     Route: 048
     Dates: start: 20070924, end: 20071003
  3. VALACICLOVIR HYDROCHLORID [Concomitant]
  4. ALBUTEROL [Concomitant]
  5. FUROSEMIDE [Concomitant]
  6. PREDNISOLONE [Concomitant]
  7. ACETAMINOPHEN [Concomitant]
  8. HEPARIN CALCIUM [Concomitant]
  9. ME-PREDNISOLONE NA SUCC. [Concomitant]
  10. VERAPAMIL HYDROCHLORIDE [Concomitant]
  11. SPIRONOLACTONE [Concomitant]
  12. AMIODARONE HCL [Concomitant]
  13. CACIT VIT D3 [Concomitant]
  14. MOVICOL [Concomitant]

REACTIONS (2)
  - DRUG INTERACTION [None]
  - RENAL FAILURE [None]
